FAERS Safety Report 7115784-1 (Version None)
Quarter: 2010Q4

REPORT INFORMATION
  Report Type: 
  Country: None (occurrence: None)
  Receive Date: 20101122
  Receipt Date: 20100608
  Transmission Date: 20110411
  Serious: Yes (Other)
  Sender: FDA-Public Use
  Company Number: US-BAYER-201013278NA

PATIENT
  Age: 20 Year
  Sex: Female
  Weight: 48 kg

DRUGS (9)
  1. YAZ [Suspect]
     Dosage: PHARMACY RECORDS: 20-JUL-2007 TO 21-SEP-2008, PLAINTIFF FACT SHEET MAY-2007
     Route: 048
     Dates: start: 20070720, end: 20080921
  2. YASMIN [Suspect]
     Dosage: MEDICAL RECORDS INDICATED YASMIN AS CURRENT MEDICATION ON 07-MAY-2008 AND 01-DEC-2009
     Route: 048
  3. DEPO-PROVERA [Concomitant]
     Dates: start: 20080101, end: 20090101
  4. TRAMADOL HYDROCHLORIDE AND ACETAMINOPHEN [Concomitant]
     Dosage: 37.5/325
     Route: 065
     Dates: start: 20070724, end: 20070726
  5. AZITHROMYCIN [Concomitant]
     Route: 065
     Dates: start: 20071016, end: 20071020
  6. METRONIDAZOLE [Concomitant]
     Route: 065
     Dates: start: 20080119, end: 20080201
  7. METRONIDAZOLE [Concomitant]
     Route: 065
     Dates: start: 20071120, end: 20071129
  8. FOLIC ACID [Concomitant]
     Route: 065
     Dates: start: 20080110, end: 20080208
  9. DOXICYCLIN [Concomitant]
     Route: 065
     Dates: start: 20080119, end: 20080201

REACTIONS (7)
  - CHOLECYSTECTOMY [None]
  - DYSPHAGIA [None]
  - GALLBLADDER DISORDER [None]
  - HEPATOBILIARY SCAN ABNORMAL [None]
  - NAUSEA [None]
  - VOMITING [None]
  - WEIGHT DECREASED [None]
